FAERS Safety Report 4275106-0 (Version None)
Quarter: 2004Q1

REPORT INFORMATION
  Report Type: 
  Country: None (occurrence: None)
  Receive Date: 20040116
  Receipt Date: 20040105
  Transmission Date: 20041129
  Serious: Yes (Disabling)
  Sender: FDA-Public Use
  Company Number: 2004001278

PATIENT
  Age: 57 Year
  Sex: Male
  Weight: 159 kg

DRUGS (14)
  1. LIPITOR [Suspect]
     Indication: HYPERCHOLESTEROLAEMIA
     Dosage: 10 MG (DAILY); ORAL
     Route: 048
     Dates: start: 20031002, end: 20031121
  2. METFORMIN HCL [Concomitant]
  3. AMLODIPINE BESYLATE [Concomitant]
  4. DEPO-MEDROL W/LIGNOCAINE (METHYLPREDNISOLONE ACETATE, LIDOCAINE) [Concomitant]
  5. LIDOCAINE [Concomitant]
  6. LISINOPRIL [Concomitant]
  7. SPIRONOLACTONE [Concomitant]
  8. BENDROFLUMETHIAZIDE [Concomitant]
  9. DOXAZOSIN MESYLATE [Concomitant]
  10. CELECOXIB [Concomitant]
  11. GABAPENTIN [Concomitant]
  12. ACETYLSALICYLIC ACID SRT [Concomitant]
  13. MEPTAZINOL [Concomitant]
  14. ACETAMINOPHEN [Concomitant]

REACTIONS (7)
  - ARTHRALGIA [None]
  - ASTHENIA [None]
  - BLOOD PRESSURE INCREASED [None]
  - CONDITION AGGRAVATED [None]
  - PAIN [None]
  - PAIN IN EXTREMITY [None]
  - SCIATICA [None]
